FAERS Safety Report 13113328 (Version 7)
Quarter: 2017Q1

REPORT INFORMATION
  Report Type: Spontaneous
  Country: CZ (occurrence: CZ)
  Receive Date: 20170113
  Receipt Date: 20170206
  Transmission Date: 20170428
  Serious: Yes (Death, Life-Threatening, Hospitalization, Other)
  Sender: FDA-Public Use
  Company Number: CZ-PFIZER INC-2017013712

PATIENT
  Age: 79 Year
  Sex: Male

DRUGS (3)
  1. AMIODARONE HCL [Suspect]
     Active Substance: AMIODARONE HYDROCHLORIDE
     Dosage: 200 MG, DAILY
  2. WARFARIN [Concomitant]
     Active Substance: WARFARIN
     Indication: ATRIAL FIBRILLATION
     Dosage: UNK
     Dates: start: 201107, end: 201206
  3. AMIODARONE HCL [Suspect]
     Active Substance: AMIODARONE HYDROCHLORIDE
     Indication: ATRIAL FIBRILLATION
     Dosage: 600 MG, DAILY
     Route: 065
     Dates: start: 20110719, end: 20110809

REACTIONS (5)
  - Cardiac failure acute [Fatal]
  - Cardiac arrest [Fatal]
  - Hyperthyroidism [Fatal]
  - Condition aggravated [Fatal]
  - Delirium [Unknown]

NARRATIVE: CASE EVENT DATE: 201312
